FAERS Safety Report 23033628 (Version 1)
Quarter: 2023Q4

REPORT INFORMATION
  Report Type: Spontaneous
  Country: US (occurrence: None)
  Receive Date: 20231004
  Receipt Date: 20231004
  Transmission Date: 20240110
  Serious: Yes (Disabling)
  Sender: FDA-Public Use
  Company Number: None

PATIENT
  Age: 61 Year
  Sex: Female
  Weight: 76.5 kg

DRUGS (1)
  1. ATORVASTATIN [Suspect]
     Active Substance: ATORVASTATIN
     Indication: Blood cholesterol abnormal
     Dosage: OTHER QUANTITY : 1 TABLET(S);?FREQUENCY : DAILY;?
     Route: 048
     Dates: start: 20221104, end: 20230920

REACTIONS (8)
  - Cough [None]
  - Productive cough [None]
  - Tobacco user [None]
  - Therapy interrupted [None]
  - Insurance issue [None]
  - Emphysema [None]
  - Refusal of treatment by patient [None]
  - Near death experience [None]

NARRATIVE: CASE EVENT DATE: 20221104
